FAERS Safety Report 24072346 (Version 5)
Quarter: 2024Q4

REPORT INFORMATION
  Report Type: Spontaneous
  Country: CA (occurrence: CA)
  Receive Date: 20240710
  Receipt Date: 20241108
  Transmission Date: 20250115
  Serious: Yes (Other)
  Sender: CELLTRION
  Company Number: CA-PFIZER INC-202400052978

PATIENT

DRUGS (2)
  1. INFLECTRA [Suspect]
     Active Substance: INFLIXIMAB-DYYB
     Indication: Pyogenic sterile arthritis pyoderma gangrenosum and acne syndrome
     Dosage: 450 MG, INDUCTION DOSES AT WEEK 0, 2 AND 6, THEN EVERY 6 TO 8 WEEKS
     Route: 042
     Dates: start: 20240321, end: 20240321
  2. INFLECTRA [Suspect]
     Active Substance: INFLIXIMAB-DYYB
     Dosage: 450 MG, INDUCTION DOSES AT WEEK 0, 2 AND 6, THEN EVERY 6 TO 8 WEEKS
     Route: 042
     Dates: start: 20240613, end: 20240613

REACTIONS (10)
  - Pyogenic sterile arthritis pyoderma gangrenosum and acne syndrome [Unknown]
  - Disease progression [Unknown]
  - Cellulitis [Not Recovered/Not Resolved]
  - Arthralgia [Not Recovered/Not Resolved]
  - Erythema [Not Recovered/Not Resolved]
  - Oedema peripheral [Not Recovered/Not Resolved]
  - Heat oedema [Not Recovered/Not Resolved]
  - Skin lesion [Not Recovered/Not Resolved]
  - Treatment failure [Unknown]
  - Off label use [Unknown]

NARRATIVE: CASE EVENT DATE: 20240101
